FAERS Safety Report 25773005 (Version 1)
Quarter: 2025Q3

REPORT INFORMATION
  Report Type: Other
  Country: CA (occurrence: CA)
  Receive Date: 20250908
  Receipt Date: 20250908
  Transmission Date: 20251020
  Serious: Yes (Hospitalization, Other)
  Sender: APOTEX
  Company Number: CA-PGRTD-001143920

PATIENT
  Age: 83 Year
  Sex: Female

DRUGS (11)
  1. DOXYCYCLINE [Suspect]
     Active Substance: DOXYCYCLINE
     Indication: Pneumonia
     Dosage: 2 EVERY 1 DAYS
     Route: 048
  2. CEFTRIAXONE [Suspect]
     Active Substance: CEFTRIAXONE
     Indication: Pneumonia
     Dosage: 1 EVERY 24 HOURS
     Route: 042
  3. ACETAMINOPHEN [Concomitant]
     Active Substance: ACETAMINOPHEN
     Route: 065
  4. BRIMONIDINE [Concomitant]
     Active Substance: BRIMONIDINE TARTRATE
     Route: 065
  5. DORZOLAMIDE HYDROCHLORIDE\TIMOLOL MALEATE [Concomitant]
     Active Substance: DORZOLAMIDE HYDROCHLORIDE\TIMOLOL MALEATE
     Route: 065
  6. LEVOTHYROXINE [Concomitant]
     Active Substance: LEVOTHYROXINE
     Route: 065
  7. RISPERIDONE [Concomitant]
     Active Substance: RISPERIDONE
     Route: 065
  8. RIVASTIGMINE [Concomitant]
     Active Substance: RIVASTIGMINE
     Route: 065
  9. VALACYCLOVIR [Concomitant]
     Active Substance: VALACYCLOVIR HYDROCHLORIDE
     Route: 065
  10. VENLAFAXINE HYDROCHLORIDE [Concomitant]
     Active Substance: VENLAFAXINE HYDROCHLORIDE
     Route: 065
  11. CYANOCOBALAMIN [Concomitant]
     Active Substance: CYANOCOBALAMIN
     Route: 065

REACTIONS (4)
  - Bacterial translocation [Recovering/Resolving]
  - Sepsis [Recovering/Resolving]
  - Clostridium difficile infection [Recovering/Resolving]
  - Colitis [Recovering/Resolving]
